FAERS Safety Report 5656373-5 (Version None)
Quarter: 2008Q1

REPORT INFORMATION
  Report Type: 
  Country: None (occurrence: None)
  Receive Date: 20080309
  Receipt Date: 20071218
  Transmission Date: 20080703
  Serious: No
  Sender: FDA-Public Use
  Company Number: US-BAYER-200714220BCC

PATIENT
  Age: 77 Year
  Sex: Male
  Weight: 85 kg

DRUGS (4)
  1. ALEVE [Suspect]
     Indication: ARTHRALGIA
     Dosage: TOTAL DAILY DOSE: 440 MG  UNIT DOSE: 220 MG
     Route: 048
     Dates: start: 20071215, end: 20071215
  2. ALEVE [Suspect]
     Dosage: UNIT DOSE: 220 MG
     Route: 048
     Dates: start: 20071216
  3. ARTHRITIS PILL [Concomitant]
  4. HIGH BLOOD PRESSURE MEDICATION [Concomitant]

REACTIONS (2)
  - NO ADVERSE EVENT [None]
  - PAIN IN EXTREMITY [None]
